FAERS Safety Report 5707097-7 (Version None)
Quarter: 2008Q2

REPORT INFORMATION
  Report Type: 
  Country: None (occurrence: None)
  Receive Date: 20080416
  Receipt Date: 20080403
  Transmission Date: 20081010
  Serious: Yes (Congenital Anomaly)
  Sender: FDA-Public Use
  Company Number: US-AVENTIS-200813025GDDC

PATIENT
  Age: 0 Day

DRUGS (3)
  1. CICLOPIROX OLAMINE [Suspect]
     Dosage: DOSE: UNK
     Route: 065
  2. ECONAZOLE NITRATE [Suspect]
     Dosage: DOSE: UNK
     Route: 065
  3. TERBINAFINE HCL [Suspect]
     Dosage: DOSE: UNK
     Route: 065

REACTIONS (2)
  - CLEFT PALATE [None]
  - DRUG EXPOSURE DURING PREGNANCY [None]
